FAERS Safety Report 8838592 (Version 1)
Quarter: 2012Q4

REPORT INFORMATION
  Report Type: 
  Country: US (occurrence: US)
  Receive Date: 20121012
  Receipt Date: 20121012
  Transmission Date: 20130627
  Serious: Yes (Other)
  Sender: FDA-Public Use
  Company Number: US-ASTRAZENECA-2012SE76535

PATIENT
  Sex: Female

DRUGS (4)
  1. FASLODEX [Suspect]
     Indication: BREAST CANCER
     Route: 030
  2. DENOSUMAB [Concomitant]
  3. EXEMESTANE [Concomitant]
  4. HEPARIN SODIUM [Concomitant]

REACTIONS (1)
  - Metastases to bone [Unknown]
